FAERS Safety Report 6175129-0 (Version None)
Quarter: 2009Q2

REPORT INFORMATION
  Report Type: 
  Country: None (occurrence: None)
  Receive Date: 20090430
  Receipt Date: 20081231
  Transmission Date: 20091009
  Serious: No
  Sender: FDA-Public Use
  Company Number: US-ASTRAZENECA-2008UW29002

PATIENT
  Sex: Female

DRUGS (1)
  1. NEXIUM [Suspect]
     Route: 048
     Dates: start: 20070101

REACTIONS (3)
  - ABDOMINAL PAIN UPPER [None]
  - DYSGEUSIA [None]
  - DYSPEPSIA [None]
